FAERS Safety Report 7243420-2 (Version None)
Quarter: 2011Q1

REPORT INFORMATION
  Report Type: 
  Country: None (occurrence: None)
  Receive Date: 20110125
  Receipt Date: 20110120
  Transmission Date: 20110831
  Serious: Yes (Life-Threatening, Hospitalization)
  Sender: FDA-Public Use
  Company Number: US-ASTRAZENECA-2010SE29601

PATIENT
  Age: 52 Year
  Sex: Male
  Weight: 68 kg

DRUGS (4)
  1. TYLENOL PM [Suspect]
     Route: 048
  2. LYRICA [Concomitant]
  3. SEROQUEL [Suspect]
     Indication: BIPOLAR DISORDER
     Route: 048
     Dates: start: 20080101, end: 20100601
  4. CLONIPINE [Concomitant]

REACTIONS (4)
  - DRUG DOSE OMISSION [None]
  - OVERDOSE [None]
  - COMA [None]
  - INSOMNIA [None]
